FAERS Safety Report 14998498 (Version 1)
Quarter: 2018Q2

REPORT INFORMATION
  Report Type: Spontaneous
  Country: DE (occurrence: DE)
  Receive Date: 20180612
  Receipt Date: 20180612
  Transmission Date: 20180711
  Serious: Yes (Hospitalization)
  Sender: FDA-Public Use
  Company Number: DE-TEVA-2018-DE-903945

PATIENT
  Age: 75 Year
  Sex: Male
  Weight: 102 kg

DRUGS (6)
  1. DOXEPIN [Concomitant]
     Active Substance: DOXEPIN
     Dosage: 3-3-0-5
     Route: 048
  2. CLONIDINE. [Suspect]
     Active Substance: CLONIDINE
     Dosage: 150 MICROGRAM DAILY; 1-0-1-0
     Route: 048
  3. ACETYLSALICYLSAEURE [Concomitant]
     Active Substance: ASPIRIN
     Dosage: 1-0-0-0
     Route: 048
  4. CANDESARTAN. [Concomitant]
     Active Substance: CANDESARTAN
     Dosage: 32|12.5 MG, 0-0-0.5-0.5
     Route: 048
  5. CLOPIDOGREL [Concomitant]
     Active Substance: CLOPIDOGREL BISULFATE
     Dosage: 1-0-0-0
     Route: 048
  6. METOBETA [Concomitant]
     Active Substance: METOPROLOL TARTRATE
     Dosage: 1-0-0-1
     Route: 048

REACTIONS (3)
  - Hypertension [Unknown]
  - Drug prescribing error [Unknown]
  - Restlessness [Unknown]
